FAERS Safety Report 5463913-8 (Version None)
Quarter: 2007Q3

REPORT INFORMATION
  Report Type: 
  Country: None (occurrence: None)
  Receive Date: 20070919
  Receipt Date: 20070907
  Transmission Date: 20080115
  Serious: Yes (Other)
  Sender: FDA-Public Use
  Company Number: 237596K07USA

PATIENT
  Age: 52 Year
  Sex: Female

DRUGS (3)
  1. REBIF [Suspect]
     Indication: MULTIPLE SCLEROSIS
     Dosage: 44 MCG, 3 IN 1 WEEKS, SUBCUTANEOUS
     Route: 058
     Dates: start: 20070307
  2. ASPIRIN [Concomitant]
  3. METOPROLOL TARTRATE [Concomitant]

REACTIONS (3)
  - CARDIAC ARREST [None]
  - GRAND MAL CONVULSION [None]
  - RESPIRATORY ARREST [None]
